FAERS Safety Report 5344204-2 (Version None)
Quarter: 2007Q2

REPORT INFORMATION
  Report Type: 
  Country: None (occurrence: None)
  Receive Date: 20070531
  Receipt Date: 20070531
  Transmission Date: 20071010
  Serious: Yes (Other)
  Sender: FDA-Public Use
  Company Number: None

PATIENT
  Sex: Female
  Weight: 65.7716 kg

DRUGS (1)
  1. VESICARE [Suspect]
     Indication: HYPERTONIC BLADDER
     Dosage: 5MG DAILY PO
     Route: 048
     Dates: start: 20070422, end: 20070429

REACTIONS (2)
  - ALLERGIC CYSTITIS [None]
  - CYSTITIS HAEMORRHAGIC [None]
